FAERS Safety Report 19956065 (Version 2)
Quarter: 2021Q4

REPORT INFORMATION
  Report Type: Other
  Country: JP (occurrence: JP)
  Receive Date: 20211014
  Receipt Date: 20211224
  Transmission Date: 20220303
  Serious: Yes (Death, Other)
  Sender: FDA-Public Use
  Company Number: JP-CHUGAI-2021021780

PATIENT
  Age: 83 Year
  Sex: Male
  Weight: 44.4 kg

DRUGS (7)
  1. POLIVY [Suspect]
     Active Substance: POLATUZUMAB VEDOTIN-PIIQ
     Indication: Diffuse large B-cell lymphoma
     Route: 041
     Dates: start: 20210623, end: 20210623
  2. BENDAMUSTINE HYDROCHLORIDE [Suspect]
     Active Substance: BENDAMUSTINE HYDROCHLORIDE
     Indication: Diffuse large B-cell lymphoma
     Dosage: UNK
     Route: 041
     Dates: start: 20210623, end: 20210624
  3. RITUXIMAB [Suspect]
     Active Substance: RITUXIMAB
     Indication: Diffuse large B-cell lymphoma
     Route: 041
     Dates: start: 20210622, end: 20210622
  4. SULFAMETHOXAZOLE\TRIMETHOPRIM [Concomitant]
     Active Substance: SULFAMETHOXAZOLE\TRIMETHOPRIM
     Indication: Infection prophylaxis
     Dosage: UNK
     Route: 048
  5. FLUCONAZOLE [Concomitant]
     Active Substance: FLUCONAZOLE
     Dosage: UNK
     Route: 048
  6. FLUCONAZOLE [Concomitant]
     Active Substance: FLUCONAZOLE
     Dosage: UNK
  7. VINCRISTINE SULFATE [Concomitant]
     Active Substance: VINCRISTINE SULFATE

REACTIONS (2)
  - Disease progression [Fatal]
  - Leukopenia [Not Recovered/Not Resolved]

NARRATIVE: CASE EVENT DATE: 20210630
